FAERS Safety Report 15149410 (Version 1)
Quarter: 2018Q3

REPORT INFORMATION
  Report Type: Spontaneous
  Country: US (occurrence: US)
  Receive Date: 20180619
  Receipt Date: 20180619
  Transmission Date: 20181010
  Serious: Yes (Hospitalization)
  Sender: FDA-Public Use
  Company Number: None

PATIENT
  Age: 62 Year
  Sex: Male
  Weight: 85.5 kg

DRUGS (5)
  1. LISINOPRIL. [Concomitant]
     Active Substance: LISINOPRIL
  2. BELSOMRA [Suspect]
     Active Substance: SUVOREXANT
     Indication: INSOMNIA
     Dosage: ?          QUANTITY:1 TABLET(S);?
     Route: 048
     Dates: start: 20171201, end: 20180509
  3. LORAZEPAM. [Concomitant]
     Active Substance: LORAZEPAM
  4. BABY ASPIRIN [Concomitant]
     Active Substance: ASPIRIN
  5. VENTOLIN [Concomitant]
     Active Substance: ALBUTEROL SULFATE

REACTIONS (8)
  - Concussion [None]
  - Laceration [None]
  - Road traffic accident [None]
  - Back injury [None]
  - Somnambulism [None]
  - Fatigue [None]
  - Confusional state [None]
  - Depression [None]

NARRATIVE: CASE EVENT DATE: 20180510
